FAERS Safety Report 10815830 (Version 1)
Quarter: 2015Q1

REPORT INFORMATION
  Report Type: Report from Study
  Country: US (occurrence: US)
  Receive Date: 20150218
  Receipt Date: 20150218
  Transmission Date: 20150721
  Serious: No
  Sender: FDA-Public Use
  Company Number: US-ABBVIE-14K-163-1282894-00

PATIENT
  Age: 42 Year
  Sex: Female

DRUGS (6)
  1. FOLIC ACID. [Concomitant]
     Active Substance: FOLIC ACID
     Indication: PRODUCT USED FOR UNKNOWN INDICATION
  2. MULTIVITAMIN [Concomitant]
     Active Substance: VITAMINS
     Indication: PRODUCT USED FOR UNKNOWN INDICATION
  3. HUMIRA [Suspect]
     Active Substance: ADALIMUMAB
     Indication: RHEUMATOID ARTHRITIS
  4. BIOTIN [Concomitant]
     Active Substance: BIOTIN
     Indication: VITAMIN SUPPLEMENTATION
  5. CORTISONE [Suspect]
     Active Substance: CORTISONE\HYDROCORTISONE
     Indication: RASH PAPULAR
     Dates: start: 201409
  6. METHOTREXATE [Concomitant]
     Active Substance: METHOTREXATE
     Indication: PRODUCT USED FOR UNKNOWN INDICATION

REACTIONS (3)
  - Injection site erythema [Not Recovered/Not Resolved]
  - Drug ineffective [Unknown]
  - Rash papular [Not Recovered/Not Resolved]

NARRATIVE: CASE EVENT DATE: 201409
